FAERS Safety Report 8634678 (Version 2)
Quarter: 2012Q4

REPORT INFORMATION
  Report Type: Report from Study
  Country: DE (occurrence: DE)
  Receive Date: 20120626
  Receipt Date: 20120917
  Transmission Date: 20130627
  Serious: Yes (Hospitalization, Other)
  Sender: FDA-Public Use
  Company Number: PHHY2009DE12520

PATIENT
  Age: 62 Year
  Sex: Female
  Weight: 70 kg

DRUGS (5)
  1. AMN107 [Suspect]
     Indication: CHRONIC MYELOID LEUKAEMIA
     Dosage: 300 mg, BID
     Route: 048
     Dates: start: 2007, end: 2012
  2. BISO-HENNIG [Concomitant]
     Indication: HYPERTENSION
     Dosage: 2.5 mg, QD
     Route: 048
  3. OMEPRAZOL [Concomitant]
     Indication: PROPHYLAXIS
     Dosage: 20 mg, QD
     Route: 048
     Dates: start: 20080128
  4. DYTIDE H [Concomitant]
     Indication: HYPERTENSION
     Dosage: 0.5 DF, per day
     Route: 048
  5. SIMVASTATIN [Concomitant]
     Dosage: 40 mg, per day
     Route: 048

REACTIONS (16)
  - Peripheral arterial occlusive disease [Recovering/Resolving]
  - Peripheral artery thrombosis [Recovering/Resolving]
  - Gene mutation identification test positive [Unknown]
  - Peripheral embolism [Recovering/Resolving]
  - Pain in extremity [Recovering/Resolving]
  - Atrial fibrillation [Recovered/Resolved]
  - Peripheral artery stenosis [Recovering/Resolving]
  - Depression [Unknown]
  - Thrombocytopenia [Unknown]
  - Gastrooesophageal reflux disease [Unknown]
  - Thrombophlebitis [Unknown]
  - Dry skin [Unknown]
  - Pruritus [Unknown]
  - Bone pain [Unknown]
  - Influenza [Unknown]
  - Gait disturbance [Unknown]
